FAERS Safety Report 21617131 (Version 4)
Quarter: 2023Q1

REPORT INFORMATION
  Report Type: Spontaneous
  Country: US (occurrence: US)
  Receive Date: 20221118
  Receipt Date: 20230330
  Transmission Date: 20230418
  Serious: No
  Sender: FDA-Public Use
  Company Number: US-THERATECHNOLOGIES INC.-2022-THE-TES-000326

PATIENT

DRUGS (5)
  1. EGRIFTA SV [Suspect]
     Active Substance: TESAMORELIN ACETATE
     Indication: Lipodystrophy acquired
     Dosage: 1.4 MG, QD
     Route: 058
     Dates: start: 202209
  2. BIKTARVY [Concomitant]
     Active Substance: BICTEGRAVIR SODIUM\EMTRICITABINE\TENOFOVIR ALAFENAMIDE FUMARATE
     Indication: Product used for unknown indication
  3. AMLODIPINE [Concomitant]
     Active Substance: AMLODIPINE BESYLATE
     Indication: Product used for unknown indication
  4. LOSARTAN [Concomitant]
     Active Substance: LOSARTAN
     Indication: Product used for unknown indication
  5. NADOLOL [Concomitant]
     Active Substance: NADOLOL
     Indication: Product used for unknown indication

REACTIONS (6)
  - Blister [Recovered/Resolved]
  - Weight increased [Unknown]
  - Pruritus [Recovered/Resolved]
  - Hypoaesthesia [Recovered/Resolved]
  - Injection site swelling [Recovered/Resolved]
  - Injection site bruising [Recovered/Resolved]
